FAERS Safety Report 26112868 (Version 1)
Quarter: 2025Q4

REPORT INFORMATION
  Report Type: Spontaneous
  Country: US (occurrence: US)
  Receive Date: 20251202
  Receipt Date: 20251202
  Transmission Date: 20260118
  Serious: No
  Sender: SANOFI AVENTIS
  Company Number: US-SA-2025SA358789

PATIENT
  Sex: Male
  Weight: 98.64 kg

DRUGS (2)
  1. DUPIXENT [Interacting]
     Active Substance: DUPILUMAB
     Dosage: 2 ML, QOW
     Route: 058
  2. XOLAIR [Interacting]
     Active Substance: OMALIZUMAB
     Route: 065

REACTIONS (2)
  - Drug interaction [Unknown]
  - Drug hypersensitivity [Unknown]
